FAERS Safety Report 9645715 (Version 2)
Quarter: 2013Q4

REPORT INFORMATION
  Report Type: Spontaneous
  Country: US (occurrence: US)
  Receive Date: 20131025
  Receipt Date: 20131025
  Transmission Date: 20140711
  Serious: No
  Sender: FDA-Public Use
  Company Number: US-MYLANLABS-2013S1015561

PATIENT
  Age: 53 Year
  Sex: Female

DRUGS (4)
  1. RIZATRIPTAN BENZOATE TABLETS [Suspect]
     Indication: MIGRAINE
     Dates: start: 201303
  2. TOPAMAX [Concomitant]
  3. NORTRIPTYLINE [Concomitant]
  4. CLARITIN /00917501/ [Concomitant]

REACTIONS (2)
  - Drug ineffective [Not Recovered/Not Resolved]
  - Migraine [Not Recovered/Not Resolved]
